FAERS Safety Report 10151469 (Version 1)
Quarter: 2014Q2

REPORT INFORMATION
  Report Type: Other
  Country: US (occurrence: US)
  Receive Date: 20140504
  Receipt Date: 20140504
  Transmission Date: 20141212
  Serious: Yes (Other)
  Sender: FDA-Public Use
  Company Number: US-BRISTOL-MYERS SQUIBB COMPANY-20698023

PATIENT
  Age: 76 Year
  Sex: Female

DRUGS (2)
  1. ETOPOSIDE [Suspect]
     Indication: SMALL CELL CARCINOMA
  2. CARBOPLATIN [Suspect]
     Indication: SMALL CELL CARCINOMA

REACTIONS (1)
  - Tumour lysis syndrome [Unknown]
